FAERS Safety Report 18414820 (Version 5)
Quarter: 2021Q1

REPORT INFORMATION
  Report Type: Spontaneous
  Country: ZA (occurrence: ZA)
  Receive Date: 20201022
  Receipt Date: 20210208
  Transmission Date: 20210419
  Serious: Yes (Other)
  Sender: FDA-Public Use
  Company Number: ZA-BAYER-2020-222249

PATIENT
  Age: 41 Year
  Sex: Female

DRUGS (1)
  1. MIRENA [Suspect]
     Active Substance: LEVONORGESTREL
     Dosage: 20 ?G PER DAY, CONTINUOUSLY
     Route: 015
     Dates: start: 2015, end: 20201026

REACTIONS (3)
  - Device breakage [Recovered/Resolved]
  - Embedded device [None]
  - Complication of device removal [Recovered/Resolved]

NARRATIVE: CASE EVENT DATE: 20201014
